FAERS Safety Report 4553642-7 (Version None)
Quarter: 2004Q4

REPORT INFORMATION
  Report Type: 
  Country: None (occurrence: None)
  Receive Date: 20041227
  Receipt Date: 20041020
  Transmission Date: 20050328
  Serious: No
  Sender: FDA-Public Use
  Company Number: 04P-163-0278046-00

PATIENT
  Age: 52 Year
  Sex: Male
  Weight: 136 kg

DRUGS (17)
  1. HUMIRA [Suspect]
     Indication: RHEUMATOID ARTHRITIS
     Dosage: 40 MG, 1 IN 2 WK, SUBCUTANEOUS
     Route: 058
     Dates: start: 20031101
  2. FUROSEMIDE [Concomitant]
  3. SPIRINOLACTONE [Concomitant]
  4. RISEDRONATE SODIUM [Concomitant]
  5. ALBUTEROL [Concomitant]
  6. IPATROPIUM BROMIDE [Concomitant]
  7. NICOTINIC ACID [Concomitant]
  8. FORTAGESIC [Concomitant]
  9. TEMAZEPAM [Concomitant]
  10. SERETIDE MITE [Concomitant]
  11. ATENOLOL [Concomitant]
  12. ATORVASTATIN [Concomitant]
  13. INDOMETHACIN [Concomitant]
  14. FAMOTIDINE [Concomitant]
  15. GABAPENTIN [Concomitant]
  16. PREDNISONE [Concomitant]
  17. TERAZOSIN [Concomitant]

REACTIONS (4)
  - INJECTION SITE BURNING [None]
  - MALAISE [None]
  - OTITIS EXTERNA [None]
  - PYREXIA [None]
